FAERS Safety Report 15628493 (Version 1)
Quarter: 2018Q4

REPORT INFORMATION
  Report Type: Spontaneous
  Country: KR (occurrence: KR)
  Receive Date: 20181116
  Receipt Date: 20181116
  Transmission Date: 20190205
  Serious: Yes (Other)
  Sender: FDA-Public Use
  Company Number: KR-BAYER-2018-207457

PATIENT
  Sex: Female

DRUGS (3)
  1. DACARBAZINE. [Suspect]
     Active Substance: DACARBAZINE
     Dosage: TOTAL OF 6 DOSES
     Dates: start: 20140728, end: 20141118
  2. ZOMETA [Concomitant]
     Active Substance: ZOLEDRONIC ACID
     Indication: CHEMOTHERAPY
  3. ADRIAMYCIN [Concomitant]
     Active Substance: DOXORUBICIN HYDROCHLORIDE
     Dosage: TOTAL OF 6 DOSES
     Dates: start: 20140728, end: 20141118

REACTIONS (2)
  - Breast cancer female [None]
  - Disease progression [None]

NARRATIVE: CASE EVENT DATE: 201604
